FAERS Safety Report 23605150 (Version 1)
Quarter: 2024Q1

REPORT INFORMATION
  Report Type: Spontaneous
  Country: US (occurrence: None)
  Receive Date: 20240306
  Receipt Date: 20240306
  Transmission Date: 20240410
  Serious: Yes (unspecified)
  Sender: FDA-Public Use
  Company Number: None

PATIENT
  Age: 70 Year
  Sex: Female

DRUGS (1)
  1. HUMIRA [Suspect]
     Active Substance: ADALIMUMAB
     Indication: Apocrine miliaria
     Dosage: FREQUENCY : EVERY OTHER WEEK;?

REACTIONS (3)
  - Injection site infection [None]
  - Therapy interrupted [None]
  - Liquid product physical issue [None]
